FAERS Safety Report 10930582 (Version 2)
Quarter: 2015Q2

REPORT INFORMATION
  Report Type: Report from Study
  Country: US (occurrence: US)
  Receive Date: 20150319
  Receipt Date: 20150402
  Transmission Date: 20150821
  Serious: Yes (Other)
  Sender: FDA-Public Use
  Company Number: US-GILEAD-2015-0140384

PATIENT
  Age: 60 Year
  Sex: Male
  Weight: 118.82 kg

DRUGS (2)
  1. IDELALISIB [Suspect]
     Active Substance: IDELALISIB
     Dosage: 150 MG, BID
     Route: 048
     Dates: start: 20141206
  2. IDELALISIB [Suspect]
     Active Substance: IDELALISIB
     Indication: B-CELL LYMPHOMA
     Dosage: UNK
     Route: 048
     Dates: start: 20141119

REACTIONS (8)
  - Atelectasis [Unknown]
  - Cough [Unknown]
  - Anxiety [Unknown]
  - Tremor [Unknown]
  - Pyrexia [Unknown]
  - Dyspnoea [Unknown]
  - Lower respiratory tract inflammation [Recovered/Resolved]
  - Flatulence [Unknown]

NARRATIVE: CASE EVENT DATE: 20150202
